FAERS Safety Report 6832664-7 (Version None)
Quarter: 2010Q3

REPORT INFORMATION
  Report Type: 
  Country: None (occurrence: None)
  Receive Date: 20100712
  Receipt Date: 20100616
  Transmission Date: 20110219
  Serious: Yes (Hospitalization)
  Sender: FDA-Public Use
  Company Number: JP-SANOFI-AVENTIS-2010SA000224

PATIENT
  Age: 20 Year
  Sex: Male
  Weight: 83.7 kg

DRUGS (2)
  1. PLAVIX [Suspect]
     Route: 048
     Dates: start: 20061130
  2. FLUTIDE DISKUS [Concomitant]
     Route: 055
     Dates: start: 20061102

REACTIONS (1)
  - MOYAMOYA DISEASE [None]
